FAERS Safety Report 6006006-3 (Version None)
Quarter: 2008Q4

REPORT INFORMATION
  Report Type: 
  Country: None (occurrence: None)
  Receive Date: 20081216
  Receipt Date: 20081216
  Transmission Date: 20090506
  Serious: Yes (Hospitalization)
  Sender: FDA-Public Use
  Company Number: None

PATIENT
  Age: 9 Year
  Sex: Female
  Weight: 26.5 kg

DRUGS (1)
  1. BACTRIM [Suspect]
     Indication: ABSCESS
     Dosage: PO
     Route: 048
     Dates: start: 20081104, end: 20081114

REACTIONS (2)
  - RASH ERYTHEMATOUS [None]
  - RASH PRURITIC [None]
